FAERS Safety Report 16116435 (Version 1)
Quarter: 2019Q1

REPORT INFORMATION
  Report Type: Spontaneous
  Country: FR (occurrence: FR)
  Receive Date: 20190326
  Receipt Date: 20190326
  Transmission Date: 20190418
  Serious: Yes (Hospitalization)
  Sender: FDA-Public Use
  Company Number: FR-TEVA-2019-FR-1028986

PATIENT
  Age: 89 Year
  Sex: Female
  Weight: 83.2 kg

DRUGS (14)
  1. DEXERYL [Concomitant]
  2. ESOMEPRAZOLE. [Concomitant]
     Active Substance: ESOMEPRAZOLE MAGNESIUM
  3. DOLIPRANE [Concomitant]
     Active Substance: ACETAMINOPHEN
  4. TRAMADOL (CHLORHYDRATE DE) [Suspect]
     Active Substance: TRAMADOL HYDROCHLORIDE
     Indication: PAIN
     Dosage: 100 MILLIGRAM DAILY;
     Route: 048
     Dates: end: 20141216
  5. MONO TILDIEM LP 200 MG, G?LULE ? LIB?RATION PROLONG?E [Suspect]
     Active Substance: DILTIAZEM HYDROCHLORIDE
     Indication: HYPERTENSION
     Dosage: 200 MILLIGRAM DAILY;
     Route: 048
     Dates: end: 20141216
  6. EDUCTYL [Concomitant]
     Active Substance: POTASSIUM BITARTRATE\SODIUM BICARBONATE
  7. FLECTOR [Concomitant]
     Active Substance: DICLOFENAC EPOLAMINE
  8. KALEORID [Concomitant]
     Active Substance: POTASSIUM CHLORIDE
  9. PREVISCAN [Concomitant]
  10. FUROSEMIDE. [Concomitant]
     Active Substance: FUROSEMIDE
  11. HEMIGOXINE NATIVELLE 0,125 MG, COMPRIM? [Suspect]
     Active Substance: DIGOXIN
     Indication: ARRHYTHMIA
     Dosage: .13 MILLIGRAM DAILY;
     Route: 048
     Dates: end: 20141216
  12. ARIMIDEX [Concomitant]
     Active Substance: ANASTROZOLE
  13. UVEDOSE [Concomitant]
     Active Substance: CHOLECALCIFEROL
  14. MIANSERINE (CHLORHYDRATE DE) [Concomitant]
     Active Substance: MIANSERIN HYDROCHLORIDE

REACTIONS (3)
  - Fall [Recovered/Resolved]
  - Urinary retention [Recovered/Resolved]
  - Bradycardia [Recovered/Resolved]

NARRATIVE: CASE EVENT DATE: 20141216
